FAERS Safety Report 9399817 (Version 2)
Quarter: 2013Q3

REPORT INFORMATION
  Report Type: Spontaneous
  Country: GB (occurrence: GB)
  Receive Date: 20130715
  Receipt Date: 20130716
  Transmission Date: 20140515
  Serious: Yes (Hospitalization)
  Sender: FDA-Public Use
  Company Number: GB-JNJFOC-20130703608

PATIENT
  Age: 70 Year
  Sex: Male

DRUGS (3)
  1. DUROGESIC DTRANS [Suspect]
     Indication: SPINAL PAIN
     Route: 062
  2. DUROGESIC DTRANS [Suspect]
     Indication: SPINAL PAIN
     Dosage: 25 UG/HR+50 UG/HR+12.5 UG/HR
     Route: 062
  3. ORAMORPH [Suspect]
     Indication: BREAKTHROUGH PAIN
     Route: 048

REACTIONS (4)
  - Pneumonia [Unknown]
  - Loss of consciousness [Unknown]
  - Convulsion [Unknown]
  - Overdose [Unknown]
